FAERS Safety Report 16338708 (Version 1)
Quarter: 2019Q2

REPORT INFORMATION
  Report Type: Spontaneous
  Country: US (occurrence: US)
  Receive Date: 20190521
  Receipt Date: 20190521
  Transmission Date: 20190711
  Serious: No
  Sender: FDA-Public Use
  Company Number: US-NOVOPROD-597901

PATIENT
  Sex: Female

DRUGS (1)
  1. ACTIVELLA [Suspect]
     Active Substance: ESTRADIOL\NORETHINDRONE ACETATE
     Indication: OESTROGEN REPLACEMENT THERAPY
     Dosage: UNK
     Route: 048

REACTIONS (2)
  - Adverse reaction [Unknown]
  - Drug ineffective [Unknown]
